FAERS Safety Report 8903786 (Version 1)
Quarter: 2012Q4

REPORT INFORMATION
  Report Type: 
  Country: US (occurrence: US)
  Receive Date: 20121112
  Receipt Date: 20121112
  Transmission Date: 20130627
  Serious: Yes (Hospitalization)
  Sender: FDA-Public Use
  Company Number: US-MYLANLABS-2012S1022902

PATIENT
  Age: 60 Year
  Sex: Male

DRUGS (2)
  1. NIFEDIPINE [Suspect]
     Indication: INTENTIONAL OVERDOSE
     Dosage: 30 x 60mg long-acting tablets
     Route: 048
  2. DILTIAZEM [Concomitant]
     Dosage: 30 x 180mg extended-release tablets was a 30-day supply
     Route: 065

REACTIONS (4)
  - Intentional overdose [Recovered/Resolved]
  - Blood pressure systolic decreased [Recovered/Resolved]
  - Suicide attempt [Unknown]
  - Treatment noncompliance [None]
